FAERS Safety Report 10057358 (Version 2)
Quarter: 2014Q2

REPORT INFORMATION
  Report Type: Report from Study
  Country: US (occurrence: US)
  Receive Date: 20140403
  Receipt Date: 20140403
  Transmission Date: 20141212
  Serious: Yes (Hospitalization, Other)
  Sender: FDA-Public Use
  Company Number: US-BAXTER-2014BAX012774

PATIENT
  Age: 17 Year
  Sex: Female
  Weight: 48.3 kg

DRUGS (4)
  1. CYCLOPHOSPHAMIDE FOR INJECTION, USP [Suspect]
     Indication: EWING^S SARCOMA
     Route: 042
     Dates: start: 20131101, end: 20131105
  2. CRIZOTINIB [Suspect]
     Indication: EWING^S SARCOMA
     Dosage: TWICE A DAY X 21 DAYS
     Route: 048
     Dates: start: 20131101, end: 20131113
  3. TOPOTECAN HYDROCHLORIDE [Suspect]
     Indication: EWING^S SARCOMA
     Route: 042
     Dates: start: 20131101, end: 20131105
  4. GRANULOCYTE COLONY-STIMULATING FACTOR NOS [Concomitant]
     Indication: PRODUCT USED FOR UNKNOWN INDICATION
     Route: 065

REACTIONS (2)
  - Syncope [Recovered/Resolved]
  - Pyrexia [Recovered/Resolved]
